FAERS Safety Report 10255809 (Version 1)
Quarter: 2014Q2

REPORT INFORMATION
  Report Type: Spontaneous
  Country: US (occurrence: US)
  Receive Date: 20140624
  Receipt Date: 20140624
  Transmission Date: 20141212
  Serious: No
  Sender: FDA-Public Use
  Company Number: US-ZOGENIX, INC.-2012ZX000009

PATIENT
  Sex: Female

DRUGS (12)
  1. SUMAVEL DOSEPRO [Suspect]
     Indication: MIGRAINE
  2. PREDNISONE [Concomitant]
     Indication: PRODUCT USED FOR UNKNOWN INDICATION
     Route: 048
  3. NEURONTIN [Concomitant]
     Indication: MIGRAINE
     Route: 048
  4. CYMBALTA [Concomitant]
     Indication: DEPRESSION
     Route: 048
  5. METHOTREXATE [Concomitant]
     Indication: PRODUCT USED FOR UNKNOWN INDICATION
     Route: 048
  6. TRAZODONE [Concomitant]
     Indication: PRODUCT USED FOR UNKNOWN INDICATION
     Route: 048
  7. TOPAMAX [Concomitant]
     Indication: MIGRAINE
     Route: 048
  8. OXYCONTIN [Concomitant]
     Indication: PAIN
     Route: 048
  9. REMICADE [Concomitant]
     Indication: PRODUCT USED FOR UNKNOWN INDICATION
  10. AMRIX [Concomitant]
     Indication: PRODUCT USED FOR UNKNOWN INDICATION
     Route: 048
  11. LIPITOR [Concomitant]
     Indication: BLOOD CHOLESTEROL
  12. IMITREX [Concomitant]
     Indication: MIGRAINE

REACTIONS (5)
  - Injection site bruising [Recovered/Resolved]
  - Injection site erythema [Recovered/Resolved]
  - Injection site pain [Recovered/Resolved]
  - Drug effect incomplete [Recovered/Resolved]
  - Incorrect dose administered by device [Recovered/Resolved]
